FAERS Safety Report 21568131 (Version 1)
Quarter: 2022Q4

REPORT INFORMATION
  Report Type: Spontaneous
  Country: US (occurrence: None)
  Receive Date: 20221107
  Receipt Date: 20221107
  Transmission Date: 20230113
  Serious: Yes (Life-Threatening, Hospitalization)
  Sender: FDA-Public Use
  Company Number: None

PATIENT
  Age: 63 Year
  Sex: Male
  Weight: 112.04 kg

DRUGS (1)
  1. APIXABAN [Suspect]
     Active Substance: APIXABAN
     Indication: Deep vein thrombosis
     Dosage: FREQUENCY : TWICE A DAY;?
     Route: 048
     Dates: start: 20220217, end: 20221021

REACTIONS (4)
  - Upper gastrointestinal haemorrhage [None]
  - Red blood cell transfusion [None]
  - Procedure aborted [None]
  - Gastric hypomotility [None]

NARRATIVE: CASE EVENT DATE: 20221021
